FAERS Safety Report 5519206-3 (Version None)
Quarter: 2007Q4

REPORT INFORMATION
  Report Type: 
  Country: None (occurrence: None)
  Receive Date: 20071114
  Receipt Date: 20071114
  Transmission Date: 20080405
  Serious: Yes (Hospitalization)
  Sender: FDA-Public Use
  Company Number: None

PATIENT
  Age: 57 Year
  Sex: Female
  Weight: 95 kg

DRUGS (10)
  1. DOXORUBICIN HCL [Suspect]
     Indication: BREAST CANCER
     Dosage: 60MG/M2 IVQ3WK
     Route: 042
     Dates: start: 20071023
  2. CYCLOPHOSPHAMIDE [Suspect]
     Indication: BREAST CANCER
     Dosage: 600MG/M2 IVQ3WK
     Route: 042
     Dates: start: 20071023
  3. NOV-002 [Suspect]
     Dosage: 60 MG S.C. QD
     Route: 058
     Dates: start: 20071023, end: 20071028
  4. ASPIRIN [Concomitant]
  5. HYDROCHLOROTHIAZIDE [Concomitant]
  6. FLUOXETINE [Concomitant]
  7. APREPITANT [Concomitant]
  8. PROCHLORPERAZINE [Concomitant]
  9. ONDANSETRON [Concomitant]
  10. ZOLPIIDEM [Concomitant]

REACTIONS (2)
  - ARTERIAL THROMBOSIS LIMB [None]
  - FEMORAL ARTERY OCCLUSION [None]
